FAERS Safety Report 8620100-X (Version None)
Quarter: 2012Q3

REPORT INFORMATION
  Report Type: 
  Country: None (occurrence: None)
  Receive Date: 20120824
  Receipt Date: 20120814
  Transmission Date: 20120928
  Serious: Yes (Disabling)
  Sender: FDA-Public Use
  Company Number: FR-CELGENEUS-056-21880-12061796

PATIENT
  Sex: Male

DRUGS (6)
  1. VALACYCLOVIR HYDROCHLORIDE [Concomitant]
     Indication: PROPHYLAXIS
     Dosage: 500 MILLIGRAM
     Dates: start: 20120221, end: 20120529
  2. REVLIMID [Suspect]
     Indication: MULTIPLE MYELOMA
     Dosage: 25 MILLIGRAM
     Route: 048
     Dates: start: 20120221, end: 20120529
  3. BACTRIM DS [Concomitant]
     Indication: PROPHYLAXIS
     Route: 065
     Dates: start: 20120221, end: 20120529
  4. ASPEGIC 1000 [Concomitant]
     Indication: THROMBOSIS PROPHYLAXIS
     Dosage: 100 MILLIGRAM
     Route: 065
     Dates: start: 20120221, end: 20120529
  5. DEXAMETHASONE [Concomitant]
     Indication: MULTIPLE MYELOMA
     Route: 065
     Dates: start: 20120221, end: 20120529
  6. LEUCOVORIN CALCIUM [Concomitant]
     Indication: PROPHYLAXIS
     Dates: start: 20120221, end: 20120529

REACTIONS (1)
  - DEAFNESS [None]
